FAERS Safety Report 9397630 (Version 3)
Quarter: 2013Q3

REPORT INFORMATION
  Report Type: Spontaneous
  Country: FR (occurrence: FR)
  Receive Date: 20130712
  Receipt Date: 20130830
  Transmission Date: 20140515
  Serious: Yes (Hospitalization, Other)
  Sender: FDA-Public Use
  Company Number: FR-PFIZER INC-2013198995

PATIENT
  Age: 35 Year
  Sex: Male
  Weight: 72 kg

DRUGS (3)
  1. ZYVOXID [Suspect]
     Indication: SEPSIS
     Dosage: 500 MG, 2X/DAY
     Route: 048
     Dates: start: 20130627, end: 20130701
  2. TAZOCILLINE [Concomitant]
     Indication: SEPSIS
     Dosage: 4 G, 3X/DAY
     Route: 042
     Dates: start: 20130617
  3. AMIKLIN [Concomitant]
     Indication: SEPSIS
     Dosage: UNK
     Route: 042
     Dates: start: 20130617

REACTIONS (5)
  - Renal failure acute [Recovered/Resolved with Sequelae]
  - Hepatocellular injury [Recovering/Resolving]
  - Pancytopenia [Recovering/Resolving]
  - Jaundice cholestatic [Recovering/Resolving]
  - Systemic lupus erythematosus [Unknown]
